FAERS Safety Report 20698622 (Version 1)
Quarter: 2022Q2

REPORT INFORMATION
  Report Type: Spontaneous
  Country: US (occurrence: US)
  Receive Date: 20220412
  Receipt Date: 20220412
  Transmission Date: 20220720
  Serious: Yes (Death, Other)
  Sender: FDA-Public Use
  Company Number: US-SUN PHARMACEUTICAL INDUSTRIES LTD-2022R1-332543

PATIENT
  Age: 44 Year
  Sex: Male

DRUGS (1)
  1. LITHIUM [Suspect]
     Active Substance: LITHIUM
     Indication: Product used for unknown indication
     Dosage: UNK
     Route: 065

REACTIONS (9)
  - Anaphylactic shock [Fatal]
  - Poliomyelitis [Unknown]
  - Product prescribing issue [Unknown]
  - Hallucination [Unknown]
  - Peripheral swelling [Unknown]
  - Tremor [Unknown]
  - Lethargy [Unknown]
  - Asthenia [Unknown]
  - Loss of personal independence in daily activities [Unknown]
